FAERS Safety Report 18462737 (Version 2)
Quarter: 2021Q1

REPORT INFORMATION
  Report Type: Report from Study
  Country: GB (occurrence: GB)
  Receive Date: 20201104
  Receipt Date: 20210128
  Transmission Date: 20210419
  Serious: Yes (Hospitalization, Other)
  Sender: FDA-Public Use
  Company Number: NVSC2020GB267512

PATIENT
  Age: 64 Year
  Sex: Female

DRUGS (3)
  1. SANDOSTATIN LAR DEPOT [Suspect]
     Active Substance: OCTREOTIDE ACETATE
     Dosage: 30 MG, Q4W (EVERY 28 DAYS)
     Route: 030
     Dates: start: 20181129
  2. SANDOSTATIN LAR DEPOT [Suspect]
     Active Substance: OCTREOTIDE ACETATE
     Indication: NEUROENDOCRINE TUMOUR
     Dosage: 30 MG, Q4W (EVERY 28 DAYS)
     Route: 030
     Dates: start: 201811
  3. SANDOSTATIN LAR DEPOT [Suspect]
     Active Substance: OCTREOTIDE ACETATE
     Dosage: 30 MG, QMO (SOLUTION)
     Route: 030
     Dates: start: 20181108

REACTIONS (3)
  - Abdominal distension [Not Recovered/Not Resolved]
  - Cardiac valve disease [Recovering/Resolving]
  - Ascites [Recovering/Resolving]

NARRATIVE: CASE EVENT DATE: 20200920
